FAERS Safety Report 5154340-1 (Version None)
Quarter: 2006Q4

REPORT INFORMATION
  Report Type: 
  Country: None (occurrence: None)
  Receive Date: 20061120
  Receipt Date: 20060524
  Transmission Date: 20070319
  Serious: Yes (Death, Hospitalization)
  Sender: FDA-Public Use
  Company Number: ZA-BOEHRINGER INGELHEIM PHARMACEUTICALS, INC.-2006-BP-05920BP

PATIENT
  Sex: Male
  Weight: 2.7 kg

DRUGS (3)
  1. VIRAMUNE [Suspect]
     Indication: VERTICAL INFECTION TRANSMISSION
     Route: 048
     Dates: start: 20060414, end: 20060414
  2. VIRAMUNE [Suspect]
     Route: 048
     Dates: start: 20060412, end: 20060412
  3. ZIDOVUDINE [Suspect]
     Indication: VERTICAL INFECTION TRANSMISSION
     Route: 048
     Dates: start: 20060412, end: 20060417

REACTIONS (6)
  - BLOOD SODIUM INCREASED [None]
  - GASTROENTERITIS [None]
  - METABOLIC ACIDOSIS [None]
  - RENAL FAILURE [None]
  - SEPSIS NEONATAL [None]
  - THROMBOCYTOPENIA [None]
